FAERS Safety Report 17509545 (Version 1)
Quarter: 2020Q1

REPORT INFORMATION
  Report Type: Spontaneous
  Country: GB (occurrence: GB)
  Receive Date: 20200306
  Receipt Date: 20200306
  Transmission Date: 20200409
  Serious: Yes (Hospitalization, Other)
  Sender: FDA-Public Use
  Company Number: GB-MYLANLABS-2020M1023073

PATIENT
  Age: 57 Year
  Sex: Male

DRUGS (14)
  1. FUROSEMIDE. [Concomitant]
     Active Substance: FUROSEMIDE
     Indication: BLOOD PRESSURE INCREASED
     Dosage: QD (DOSAGE FORM: UNSPECIFIED, DOSAGE ^80 MG -MORNING^ ^40 MG - NOON)
     Route: 065
     Dates: start: 20141212
  2. FUROSEMIDE. [Concomitant]
     Active Substance: FUROSEMIDE
     Indication: MYOCARDIAL ISCHAEMIA
  3. DULOXETINE. [Concomitant]
     Active Substance: DULOXETINE
     Indication: NEUROPATHY PERIPHERAL
     Dosage: 60 MILLIGRAM, QD, DOSAGE FORM: UNSPECIFIED
     Route: 065
     Dates: start: 20110724
  4. BISOPROLOL [Concomitant]
     Active Substance: BISOPROLOL
     Indication: MYOCARDIAL ISCHAEMIA
     Dosage: 2.5 MILLIGRAM, DOSAGE FORM: UNSPECIFIED
     Route: 065
     Dates: start: 20060227
  5. LANSOPRAZOLE. [Concomitant]
     Active Substance: LANSOPRAZOLE
     Indication: GASTROOESOPHAGEAL REFLUX DISEASE
     Dosage: 30 MILLIGRAM, QD, DOSAGE FORM: UNSPECIFIED
     Route: 065
     Dates: start: 20040124
  6. PREGABALIN. [Concomitant]
     Active Substance: PREGABALIN
     Indication: NEUROPATHY PERIPHERAL
     Dosage: 300 MILLIGRAM, QD, DOSAGE FORM: UNSPECIFIED
     Route: 065
     Dates: start: 20040226
  7. INVOKANA [Suspect]
     Active Substance: CANAGLIFLOZIN
     Dosage: 300 MILLIGRAM
     Route: 048
     Dates: start: 20160208, end: 20160512
  8. INSULIN [Suspect]
     Active Substance: INSULIN NOS
     Indication: DIABETES MELLITUS
     Dosage: UNK UNK, QD, DOSAGE FORM: UNSPECIFIED
     Route: 065
     Dates: start: 20120822
  9. LOSARTAN. [Concomitant]
     Active Substance: LOSARTAN
     Indication: BLOOD PRESSURE INCREASED
     Dosage: 25 MILLIGRAM, QD, DOSAGE FORM: UNSPECIFIED
     Route: 065
     Dates: start: 20150108
  10. METFORMIN [Suspect]
     Active Substance: METFORMIN HYDROCHLORIDE
     Indication: DIABETES MELLITUS
     Dosage: 2 GRAM, QD (DOSE WAS 1000 (UNITS UNSPECIFIED))
     Route: 065
     Dates: start: 20051006
  11. SIMVASTATIN. [Concomitant]
     Active Substance: SIMVASTATIN
     Indication: MYOCARDIAL ISCHAEMIA
     Dosage: 40 MILLIGRAM, DOSAGE FORM: UNSPECIFIED
     Route: 065
     Dates: start: 20060227
  12. INVOKANA [Suspect]
     Active Substance: CANAGLIFLOZIN
     Indication: DIABETES MELLITUS
     Dosage: 100 MILLIGRAM
     Route: 048
     Dates: start: 20151120, end: 20160208
  13. ASPIRIN                            /00002701/ [Concomitant]
     Active Substance: ASPIRIN
     Indication: MYOCARDIAL ISCHAEMIA
     Dosage: 75 MILLIGRAM, DOSAGE FORM: UNSPECIFIED
     Route: 065
     Dates: start: 20060227
  14. MONOMIL XL [Concomitant]
     Active Substance: ISOSORBIDE MONONITRATE
     Indication: MYOCARDIAL ISCHAEMIA
     Dosage: 30 MILLIGRAM, QD, DOSAGE FORM: UNSPECIFIED
     Route: 065
     Dates: start: 20101118

REACTIONS (1)
  - Extremity necrosis [Unknown]

NARRATIVE: CASE EVENT DATE: 20160512
